FAERS Safety Report 15973322 (Version 2)
Quarter: 2019Q2

REPORT INFORMATION
  Report Type: Other
  Country: US (occurrence: US)
  Receive Date: 20190216
  Receipt Date: 20190619
  Transmission Date: 20190711
  Serious: No
  Sender: FDA-Public Use
  Company Number: US-AMAG PHARMACEUTICALS, INC.-AMAG201806476

PATIENT
  Sex: Female

DRUGS (1)
  1. MAKENA [Suspect]
     Active Substance: HYDROXYPROGESTERONE CAPROATE
     Indication: PREMATURE DELIVERY
     Route: 058
     Dates: start: 201810

REACTIONS (5)
  - Injection site pruritus [Unknown]
  - Injection site erythema [Unknown]
  - Lip swelling [Unknown]
  - Tongue exfoliation [Unknown]
  - Swollen tongue [Unknown]
